FAERS Safety Report 9691174 (Version 1)
Quarter: 2013Q4

REPORT INFORMATION
  Report Type: Spontaneous
  Country: US (occurrence: US)
  Receive Date: 20131115
  Receipt Date: 20131115
  Transmission Date: 20140711
  Serious: No
  Sender: FDA-Public Use
  Company Number: US-009507513-1311USA005811

PATIENT
  Age: 3 Year
  Sex: Female
  Weight: 15.87 kg

DRUGS (1)
  1. CLARITIN ORAL SOLUTION [Suspect]
     Indication: HYPERSENSITIVITY
     Dosage: 5 MG, BID
     Route: 048
     Dates: start: 20131102

REACTIONS (2)
  - Overdose [Unknown]
  - No adverse event [Unknown]
